FAERS Safety Report 6007214-8 (Version None)
Quarter: 2008Q4

REPORT INFORMATION
  Report Type: 
  Country: None (occurrence: None)
  Receive Date: 20081217
  Receipt Date: 20080214
  Transmission Date: 20090506
  Serious: No
  Sender: FDA-Public Use
  Company Number: US-ASTRAZENECA-2008UW03130

PATIENT
  Age: 81 Year
  Sex: Female
  Weight: 63.5 kg

DRUGS (5)
  1. CRESTOR [Suspect]
     Indication: BLOOD CHOLESTEROL INCREASED
     Route: 048
     Dates: start: 20080212
  2. SYNTHROID [Concomitant]
  3. VERAPAMIL [Concomitant]
  4. ZANTAC [Concomitant]
  5. BONIVA [Concomitant]

REACTIONS (2)
  - LACRIMATION INCREASED [None]
  - RHINITIS [None]
